FAERS Safety Report 10739586 (Version 1)
Quarter: 2015Q1

REPORT INFORMATION
  Report Type: Spontaneous
  Country: US (occurrence: US)
  Receive Date: 20150126
  Receipt Date: 20150126
  Transmission Date: 20150721
  Serious: Yes (Hospitalization)
  Sender: FDA-Public Use
  Company Number: US-JNJFOC-20150111005

PATIENT
  Age: 62 Year
  Sex: Female

DRUGS (1)
  1. EXTRA STRENGTH PARACETAMOL [Suspect]
     Active Substance: ACETAMINOPHEN
     Indication: TOOTHACHE
     Dosage: ABOUT 75 TABLETS IN 48 HOURS
     Route: 048
     Dates: start: 20060424

REACTIONS (3)
  - Accidental overdose [Recovering/Resolving]
  - Abdominal pain [Recovering/Resolving]
  - Transaminases increased [Recovering/Resolving]

NARRATIVE: CASE EVENT DATE: 20060424
